FAERS Safety Report 9672887 (Version 1)
Quarter: 2013Q4

REPORT INFORMATION
  Report Type: Spontaneous
  Country: US (occurrence: US)
  Receive Date: 20131106
  Receipt Date: 20131106
  Transmission Date: 20140711
  Serious: No
  Sender: FDA-Public Use
  Company Number: US-AMGEN-USASP2013069368

PATIENT
  Age: 64 Year
  Sex: Male
  Weight: 75.74 kg

DRUGS (4)
  1. ENBREL [Suspect]
     Indication: PRODUCT USED FOR UNKNOWN INDICATION
     Dosage: UNK
     Route: 065
  2. HUMIRA [Suspect]
     Indication: PSORIASIS
     Dosage: 40 MG, Q2WK
     Route: 065
  3. HUMIRA [Suspect]
     Indication: PSORIATIC ARTHROPATHY
  4. ANTIHYPERTENSIVES [Concomitant]
     Dosage: UNK

REACTIONS (4)
  - Pruritus [Unknown]
  - Drug ineffective [Unknown]
  - Weight decreased [Unknown]
  - Drug therapy [Unknown]
